FAERS Safety Report 4347644-3 (Version None)
Quarter: 2004Q2

REPORT INFORMATION
  Report Type: 
  Country: None (occurrence: None)
  Receive Date: 20040422
  Receipt Date: 20040401
  Transmission Date: 20050107
  Serious: Yes (Hospitalization, Other)
  Sender: FDA-Public Use
  Company Number: USA040463827

PATIENT
  Sex: Male

DRUGS (3)
  1. PROZAC [Suspect]
     Indication: DEPRESSION
     Dosage: UNK
     Route: 065
     Dates: start: 19900101, end: 19900101
  2. HALDOL [Concomitant]
  3. NAVANE [Concomitant]

REACTIONS (7)
  - AGGRESSION [None]
  - ANXIETY [None]
  - BEREAVEMENT REACTION [None]
  - DEPRESSION [None]
  - INTENTIONAL SELF-INJURY [None]
  - PANIC ATTACK [None]
  - SUICIDAL IDEATION [None]
